FAERS Safety Report 15745997 (Version 1)
Quarter: 2018Q4

REPORT INFORMATION
  Report Type: Spontaneous
  Country: CA (occurrence: CA)
  Receive Date: 20181220
  Receipt Date: 20181220
  Transmission Date: 20190205
  Serious: Yes (Other)
  Sender: FDA-Public Use
  Company Number: CA-PFIZER INC-2016276060

PATIENT
  Age: 54 Year
  Sex: Male

DRUGS (5)
  1. CELEBREX [Concomitant]
     Active Substance: CELECOXIB
     Indication: RHEUMATOID ARTHRITIS
     Dosage: UNK
  2. TYLENOL 8HR [Concomitant]
     Active Substance: ACETAMINOPHEN
     Indication: RHEUMATOID ARTHRITIS
     Dosage: UNK
  3. XELJANZ [Suspect]
     Active Substance: TOFACITINIB CITRATE
     Indication: RHEUMATOID ARTHRITIS
     Dosage: 5 MG, 2X/DAY
     Route: 048
     Dates: start: 20160517
  4. XELJANZ [Suspect]
     Active Substance: TOFACITINIB CITRATE
     Dosage: 5MG, ALTERNATING TWICE A DAY AND ONCE A DAY
     Route: 048
     Dates: start: 201803, end: 20181002
  5. HYDROXYCHLOROQUINE [Concomitant]
     Active Substance: HYDROXYCHLOROQUINE
     Indication: RHEUMATOID ARTHRITIS
     Dosage: 400 MG, UNK
     Route: 048
     Dates: start: 2005

REACTIONS (14)
  - Neck mass [Recovered/Resolved]
  - Back pain [Unknown]
  - Movement disorder [Not Recovered/Not Resolved]
  - Diarrhoea [Not Recovered/Not Resolved]
  - Weight increased [Not Recovered/Not Resolved]
  - Tooth disorder [Unknown]
  - Abdominal discomfort [Not Recovered/Not Resolved]
  - Leukaemia [Unknown]
  - Drug ineffective [Unknown]
  - Frequent bowel movements [Not Recovered/Not Resolved]
  - Muscle strain [Not Recovered/Not Resolved]
  - Pain [Unknown]
  - White blood cell count decreased [Not Recovered/Not Resolved]
  - Blood iron abnormal [Not Recovered/Not Resolved]

NARRATIVE: CASE EVENT DATE: 2016
